FAERS Safety Report 6929136-8 (Version None)
Quarter: 2010Q3

REPORT INFORMATION
  Report Type: 
  Country: None (occurrence: None)
  Receive Date: 20100812
  Receipt Date: 20100802
  Transmission Date: 20110219
  Serious: Yes (Life-Threatening)
  Sender: FDA-Public Use
  Company Number: 014364

PATIENT
  Sex: Male
  Weight: 86 kg

DRUGS (3)
  1. LACOSAMIDE [Suspect]
     Indication: EPILEPSY
     Dosage: (400 MG QD)
     Dates: start: 20090101
  2. BISOPROLOL [Concomitant]
  3. LAMOTRIGINE [Concomitant]

REACTIONS (2)
  - ATRIAL FLUTTER [None]
  - DISEASE RECURRENCE [None]
